FAERS Safety Report 6163387-8 (Version None)
Quarter: 2009Q2

REPORT INFORMATION
  Report Type: 
  Country: None (occurrence: None)
  Receive Date: 20090420
  Receipt Date: 20090420
  Transmission Date: 20091009
  Serious: Yes (Hospitalization)
  Sender: FDA-Public Use
  Company Number: None

PATIENT
  Age: 56 Year
  Sex: Male
  Weight: 106.5 kg

DRUGS (1)
  1. CLINDAMYCIN HCL [Suspect]
     Dosage: 300 MG QID PO
     Route: 048
     Dates: start: 20081122, end: 20081201

REACTIONS (1)
  - CLOSTRIDIAL INFECTION [None]
